FAERS Safety Report 6893060-X (Version None)
Quarter: 2010Q3

REPORT INFORMATION
  Report Type: 
  Country: None (occurrence: None)
  Receive Date: 20100731
  Receipt Date: 20090309
  Transmission Date: 20110219
  Serious: No
  Sender: FDA-Public Use
  Company Number: US-PFIZER INC-2003023136

PATIENT
  Sex: Female
  Weight: 77.11 kg

DRUGS (3)
  1. NEURONTIN [Suspect]
     Dosage: 300 MG, 3X/DAY
     Route: 065
     Dates: start: 20030301
  2. ELAVIL [Suspect]
     Dosage: UNK
     Route: 048
  3. SILYMARIN [Concomitant]
     Route: 048

REACTIONS (5)
  - ADVERSE EVENT [None]
  - DRUG INEFFECTIVE [None]
  - HEART RATE INCREASED [None]
  - HYPERTENSION [None]
  - PAIN [None]
